FAERS Safety Report 5932722-5 (Version None)
Quarter: 2008Q4

REPORT INFORMATION
  Report Type: 
  Country: None (occurrence: None)
  Receive Date: 20081027
  Receipt Date: 20081027
  Transmission Date: 20090506
  Serious: Yes (Disabling, Other)
  Sender: FDA-Public Use
  Company Number: None

PATIENT
  Age: 61 Year
  Sex: Female
  Weight: 46.2669 kg

DRUGS (3)
  1. SERTRALINE [Suspect]
     Indication: BIPOLAR I DISORDER
     Dosage: TAKE 1/2 TABLET ONCE A DAY PO
     Route: 048
     Dates: start: 20080515, end: 20081020
  2. CLONAZEPAM [Concomitant]
  3. LORTAB [Concomitant]

REACTIONS (13)
  - ANOREXIA [None]
  - ASTHENIA [None]
  - CONFUSIONAL STATE [None]
  - COORDINATION ABNORMAL [None]
  - DIARRHOEA [None]
  - EYELID OEDEMA [None]
  - FAECES DISCOLOURED [None]
  - INSOMNIA [None]
  - LIBIDO DECREASED [None]
  - MUSCLE TWITCHING [None]
  - RASH [None]
  - SEXUAL DYSFUNCTION [None]
  - WEIGHT DECREASED [None]
